FAERS Safety Report 18849023 (Version 1)
Quarter: 2021Q1

REPORT INFORMATION
  Report Type: Spontaneous
  Country: FR (occurrence: FR)
  Receive Date: 20210204
  Receipt Date: 20210204
  Transmission Date: 20210419
  Serious: Yes (Other)
  Sender: FDA-Public Use
  Company Number: FR-BRISTOL-MYERS SQUIBB COMPANY-BMS-2021-006297

PATIENT
  Age: 17 Year
  Sex: Male
  Weight: 32 kg

DRUGS (2)
  1. ECONAZOLE. [Interacting]
     Active Substance: ECONAZOLE NITRATE
     Indication: FUNGAL INFECTION
     Dosage: 2 (UNITS NOT SPECIFIED) 1 DAY
     Route: 061
     Dates: start: 20201218, end: 20201230
  2. COUMADINE [Suspect]
     Active Substance: WARFARIN SODIUM
     Indication: HEART DISEASE CONGENITAL
     Dosage: 4 MILLIGRAM, 1 DAY
     Route: 048

REACTIONS (3)
  - Intentional product use issue [Unknown]
  - Labelled drug-drug interaction medication error [Recovered/Resolved]
  - International normalised ratio increased [Recovered/Resolved]

NARRATIVE: CASE EVENT DATE: 20201218
